FAERS Safety Report 6314994-0 (Version None)
Quarter: 2009Q3

REPORT INFORMATION
  Report Type: 
  Country: None (occurrence: None)
  Receive Date: 20090819
  Receipt Date: 20090812
  Transmission Date: 20100115
  Serious: Yes (Other)
  Sender: FDA-Public Use
  Company Number: B0589109A

PATIENT
  Age: 74 Year
  Sex: Male

DRUGS (3)
  1. SERETIDE [Suspect]
     Indication: CHRONIC OBSTRUCTIVE PULMONARY DISEASE
     Route: 055
     Dates: start: 20090610
  2. LISINOPRIL [Concomitant]
     Route: 065
  3. SPIRIVA [Concomitant]
     Route: 065

REACTIONS (2)
  - BLOOD BLISTER [None]
  - DYSPHONIA [None]
